FAERS Safety Report 10421988 (Version 7)
Quarter: 2015Q1

REPORT INFORMATION
  Report Type: Spontaneous
  Country: IT (occurrence: IT)
  Receive Date: 20140901
  Receipt Date: 20150103
  Transmission Date: 20150720
  Serious: Yes (Life-Threatening, Hospitalization, Other)
  Sender: FDA-Public Use
  Company Number: IT-AUROBINDO-AUR-APL-2014-08897

PATIENT
  Age: 59 Year
  Sex: Male
  Weight: 71 kg

DRUGS (15)
  1. BISOPROLOL 1.25 MG [Suspect]
     Active Substance: BISOPROLOL
     Indication: MYOCARDIAL ISCHAEMIA
     Dosage: 1.25 MG, DAILY
     Route: 048
     Dates: start: 20140708, end: 20140811
  2. ALLOPURINOL. [Suspect]
     Active Substance: ALLOPURINOL
     Indication: HYPERURICAEMIA
     Dosage: 150 MG, DAILY
     Route: 048
     Dates: start: 20140708, end: 20140811
  3. IVABRADINE [Suspect]
     Active Substance: IVABRADINE
     Indication: ANGINA UNSTABLE
  4. LUVION                             /00252501/ [Concomitant]
     Active Substance: CANRENONE
     Indication: CARDIAC FAILURE
     Dosage: 50 MG, UNK
     Route: 048
     Dates: start: 20140410, end: 20140811
  5. BISOPROLOL 1.25 MG [Suspect]
     Active Substance: BISOPROLOL
     Indication: CARDIAC FAILURE
     Dosage: 15 MG, ONCE A DAY (2 DOSAGE FORM DAILY)
     Route: 048
  6. LORATADINE. [Suspect]
     Active Substance: LORATADINE
     Indication: PRODUCT USED FOR UNKNOWN INDICATION
     Dosage: 1 DF, DAILY
     Route: 048
     Dates: start: 20140708, end: 20140811
  7. METOLAZONE. [Suspect]
     Active Substance: METOLAZONE
     Indication: CARDIAC FAILURE
     Dosage: 5 MG, DAILY
     Route: 048
     Dates: start: 20140708, end: 20140811
  8. LASIX [Concomitant]
     Active Substance: FUROSEMIDE
     Indication: CARDIAC FAILURE
     Dosage: 750 MG, UNK
     Route: 048
     Dates: start: 20140410, end: 20140811
  9. WARFARIN SODIUM. [Concomitant]
     Active Substance: WARFARIN SODIUM
     Indication: PRODUCT USED FOR UNKNOWN INDICATION
     Dosage: 5 MG, UNK
     Route: 065
     Dates: start: 20140410, end: 20140811
  10. BISOPROLOL 1.25 MG [Suspect]
     Active Substance: BISOPROLOL
     Indication: CARDIAC FAILURE
  11. RAMIPRIL 2.5MG [Suspect]
     Active Substance: RAMIPRIL
     Indication: CARDIAC FAILURE
     Dosage: 2.5 MG, DAILY
     Route: 048
     Dates: start: 20140708, end: 20140811
  12. BISOPROLOL 1.25 MG [Suspect]
     Active Substance: BISOPROLOL
     Indication: ANGINA UNSTABLE
  13. IVABRADINE [Suspect]
     Active Substance: IVABRADINE
     Indication: CARDIAC FAILURE
  14. IVABRADINE [Suspect]
     Active Substance: IVABRADINE
     Indication: CARDIAC FAILURE
     Dosage: 15 MG, DAILY
     Route: 048
     Dates: start: 20140708, end: 20140811
  15. ASA [Concomitant]
     Active Substance: ASPIRIN
     Indication: MYOCARDIAL ISCHAEMIA
     Dosage: 100 MG, UNK
     Route: 048
     Dates: start: 20140410, end: 20140811

REACTIONS (5)
  - Erythema multiforme [Recovering/Resolving]
  - Acute kidney injury [Recovering/Resolving]
  - Drug reaction with eosinophilia and systemic symptoms [Recovering/Resolving]
  - Shock [Recovering/Resolving]
  - Multi-organ failure [Recovering/Resolving]

NARRATIVE: CASE EVENT DATE: 20140721
